FAERS Safety Report 13624825 (Version 1)
Quarter: 2017Q2

REPORT INFORMATION
  Report Type: Spontaneous
  Country: US (occurrence: US)
  Receive Date: 20170608
  Receipt Date: 20170608
  Transmission Date: 20170830
  Serious: No
  Sender: FDA-Public Use
  Company Number: US-PFIZER INC-2017249561

PATIENT
  Age: 62 Year
  Sex: Male

DRUGS (1)
  1. XANAX [Suspect]
     Active Substance: ALPRAZOLAM
     Indication: CHOKING SENSATION
     Dosage: 0.25 MG, AS NEEDED (TAKE 1 TABLET EVERY 6 TO 8 HOURS AS NEEDED)
     Route: 048
     Dates: start: 20150326

REACTIONS (1)
  - Product use in unapproved indication [Unknown]

NARRATIVE: CASE EVENT DATE: 20150326
